FAERS Safety Report 10567090 (Version 1)
Quarter: 2014Q4

REPORT INFORMATION
  Report Type: Spontaneous
  Country: DE (occurrence: DE)
  Receive Date: 20141105
  Receipt Date: 20141105
  Transmission Date: 20150529
  Serious: Yes (Hospitalization, Other)
  Sender: FDA-Public Use
  Company Number: DE-PFIZER INC-2014304468

PATIENT
  Sex: Female
  Weight: 3.58 kg

DRUGS (4)
  1. FEMIBION [Concomitant]
     Active Substance: VITAMINS
     Indication: PROPHYLAXIS OF NEURAL TUBE DEFECT
     Dosage: UNK
     Route: 064
     Dates: start: 20130628, end: 20140414
  2. VAC ANTIGRIPAL (SAISONALE) [Concomitant]
     Indication: IMMUNISATION
     Dosage: UNK
     Route: 064
  3. L-THYROXIN [Concomitant]
     Active Substance: LEVOTHYROXINE SODIUM
     Indication: HYPOTHYROIDISM
     Dosage: 25 MCG, DAILY
     Route: 064
  4. VENLAFAXINE HCL [Suspect]
     Active Substance: VENLAFAXINE HYDROCHLORIDE
     Indication: DEPRESSION
     Dosage: 150 MG, DAILY
     Route: 064
     Dates: start: 20130628

REACTIONS (9)
  - Maternal exposure timing unspecified [Unknown]
  - Feeding disorder neonatal [Recovered/Resolved]
  - Somnolence [Unknown]
  - Atrial septal defect [Unknown]
  - Neonatal respiratory distress syndrome [Recovered/Resolved]
  - Hypotonia neonatal [Unknown]
  - Developmental coordination disorder [Unknown]
  - Neonatal asphyxia [Recovered/Resolved]
  - Floppy infant [Recovering/Resolving]

NARRATIVE: CASE EVENT DATE: 2013
